FAERS Safety Report 7598938-X (Version None)
Quarter: 2011Q3

REPORT INFORMATION
  Report Type: 
  Country: None (occurrence: None)
  Receive Date: 20110711
  Receipt Date: 20110630
  Transmission Date: 20111222
  Serious: No
  Sender: FDA-Public Use
  Company Number: US-BIOGENIDEC-2011BI024328

PATIENT
  Sex: Female

DRUGS (2)
  1. TYSABRI [Suspect]
     Route: 042
     Dates: start: 20080627, end: 20080627
  2. TYSABRI [Suspect]
     Indication: MULTIPLE SCLEROSIS
     Route: 042
     Dates: start: 20110126, end: 20110525

REACTIONS (6)
  - MUSCULOSKELETAL CHEST PAIN [None]
  - LUNG DISORDER [None]
  - LOSS OF PROPRIOCEPTION [None]
  - DYSURIA [None]
  - GAIT DISTURBANCE [None]
  - FATIGUE [None]
